APPROVED DRUG PRODUCT: HALOG
Active Ingredient: HALCINONIDE
Strength: 0.1%
Dosage Form/Route: CREAM;TOPICAL
Application: N017556 | Product #001 | TE Code: AB
Applicant: SUN PHARMACEUTICAL INDUSTRIES INC
Approved: Approved Prior to Jan 1, 1982 | RLD: Yes | RS: Yes | Type: RX